FAERS Safety Report 4382880-1 (Version None)
Quarter: 2004Q2

REPORT INFORMATION
  Report Type: 
  Country: None (occurrence: None)
  Receive Date: 20040617
  Receipt Date: 20040608
  Transmission Date: 20050107
  Serious: Yes (Death)
  Sender: FDA-Public Use
  Company Number: 163-20785-04040119

PATIENT
  Age: 64 Year
  Sex: Male

DRUGS (2)
  1. THALOMID [Suspect]
     Indication: MALIGNANT MELANOMA
     Dosage: 200 MG , DAILY, ORAL
     Route: 048
     Dates: start: 20040201, end: 20040305
  2. THALOMID [Suspect]

REACTIONS (3)
  - MALIGNANT MELANOMA [None]
  - MALIGNANT NEOPLASM PROGRESSION [None]
  - METASTASES TO CENTRAL NERVOUS SYSTEM [None]
